FAERS Safety Report 6725523-1 (Version None)
Quarter: 2010Q2

REPORT INFORMATION
  Report Type: 
  Country: None (occurrence: None)
  Receive Date: 20100514
  Receipt Date: 20100506
  Transmission Date: 20101027
  Serious: Yes (Death, Hospitalization)
  Sender: FDA-Public Use
  Company Number: US-ROCHE-694898

PATIENT
  Sex: Female
  Weight: 75.3 kg

DRUGS (7)
  1. CAPECITABINE [Suspect]
     Route: 048
     Dates: start: 20090209
  2. CAPECITABINE [Suspect]
     Dosage: 1000 MG MORNING / 1500 MG EVENING
     Route: 048
     Dates: start: 20090721, end: 20091125
  3. NORVASC [Concomitant]
     Dosage: INDICATION: CARDIAC
     Route: 048
  4. ADVAIR DISKUS 100/50 [Concomitant]
     Dosage: INDICATION: RESPIRATORY; DOSE: PM Q120
     Route: 048
  5. ALBUTEROL [Concomitant]
     Dosage: INDICATION: RESPIRATORY, DOSE: PM Q60
     Route: 055
  6. SINGULAIR [Concomitant]
     Route: 048
  7. BONIVA [Concomitant]
     Indication: OSTEOPOROSIS
     Route: 048

REACTIONS (2)
  - MALIGNANT NEOPLASM PROGRESSION [None]
  - NEUROPATHY PERIPHERAL [None]
